FAERS Safety Report 5066866-X (Version None)
Quarter: 2006Q3

REPORT INFORMATION
  Report Type: 
  Country: None (occurrence: None)
  Receive Date: 20060724
  Receipt Date: 20060208
  Transmission Date: 20061208
  Serious: Yes (Hospitalization)
  Sender: FDA-Public Use
  Company Number: 6017057

PATIENT
  Age: 59 Year
  Sex: Female

DRUGS (6)
  1. LEVOTHYROXINE SODIUM [Suspect]
     Indication: HYPOTHYROIDISM
     Dosage: 62,5000 MCG (62,5 MCG, 1 IN 1 D) ORAL
     Route: 048
     Dates: start: 20040101
  2. LEVOTHYROXINE SODIUM [Suspect]
     Indication: HYPOTHYROIDISM
     Dosage: 62,5000 MCG (62,5 MCG, 1 IN 1 D) ORAL
     Route: 048
     Dates: start: 20060101
  3. MEDIATOR (TABLET) (BENFLUOREX HYDROCHLORIDE) [Suspect]
     Indication: DRUG USE FOR UNKNOWN INDICATION
     Dosage: 1,00 DOSAGE FORMS (1 DOSAGE FORMS, 1 IN 1 D) ORAL
     Route: 048
  4. PRAVASTATIN SODIUM [Suspect]
     Indication: DRUG USE FOR UNKNOWN INDICATION
     Dosage: 40,000 MG (40 MG, 1 IN 1 D) ORAL
     Route: 048
  5. LORAZEPAM [Suspect]
     Indication: DRUG USE FOR UNKNOWN INDICATION
     Dosage: 1,00 MG (1 MG, 1 IN 1 D), ORAL
     Route: 048
  6. VASTAREL (1 MG, TABLET) (TRIMETAZIDINE) [Suspect]
     Indication: DRUG USE FOR UNKNOWN INDICATION
     Dosage: 1,00 MG (1 MG, 1 IN 1 D) ORAL
     Route: 048
     Dates: end: 20050802

REACTIONS (3)
  - HYDROCEPHALUS [None]
  - LEUKOENCEPHALOPATHY [None]
  - PAPILLOEDEMA [None]
